FAERS Safety Report 8726841 (Version 7)
Quarter: 2013Q4

REPORT INFORMATION
  Report Type: Spontaneous
  Country: US (occurrence: US)
  Receive Date: 20120816
  Receipt Date: 20131126
  Transmission Date: 20140711
  Serious: Yes (Other)
  Sender: FDA-Public Use
  Company Number: US-PFIZER INC-2012195774

PATIENT
  Age: 47 Year
  Sex: Female
  Weight: 108 kg

DRUGS (10)
  1. EFFEXOR XR [Suspect]
     Indication: DEPRESSION
     Dosage: 75 MG DAILY
     Route: 048
     Dates: start: 2006
  2. EFFEXOR XR [Suspect]
     Dosage: 150 MG DAILY
     Route: 048
  3. EFFEXOR XR [Suspect]
     Dosage: 150 MG, 2X/DAY
     Route: 048
     Dates: end: 2012
  4. KEFLEX [Suspect]
     Dosage: UNK
  5. LOTENSIN [Concomitant]
     Indication: DIABETES PROPHYLAXIS
     Dosage: UNK
  6. VOLTAREN [Concomitant]
     Indication: ARTHRITIS
     Dosage: 75 MG, UNK
  7. METFORMIN [Concomitant]
     Indication: DIABETES MELLITUS
     Dosage: 500 MG, 2X/DAY
  8. TRAMADOL [Concomitant]
     Indication: FIBROMYALGIA
     Dosage: UNK
  9. ZOCOR [Concomitant]
     Indication: CARDIAC DISORDER
     Dosage: 40 MG, UNK
  10. ZOCOR [Concomitant]
     Indication: BLOOD CHOLESTEROL INCREASED

REACTIONS (11)
  - Depression [Unknown]
  - Drug ineffective [Unknown]
  - Product colour issue [Unknown]
  - Hypoaesthesia [Unknown]
  - Paraesthesia [Unknown]
  - Thinking abnormal [Unknown]
  - Speech disorder [Unknown]
  - Stress [Unknown]
  - Hearing impaired [Unknown]
  - Activities of daily living impaired [Unknown]
  - Fatigue [Not Recovered/Not Resolved]
